FAERS Safety Report 8572966-X (Version None)
Quarter: 2012Q2

REPORT INFORMATION
  Report Type: 
  Country: None (occurrence: None)
  Receive Date: 20120420
  Receipt Date: 20120420
  Transmission Date: 20120825
  Serious: Yes (Hospitalization, Other)
  Sender: FDA-Public Use
  Company Number: ALL1-2012-00982

PATIENT
  Age: 47 Year
  Sex: Female

DRUGS (5)
  1. EVAMIST (ESTRADIOL) GEL ONGOING [Concomitant]
  2. HYDROCODONE (HYDROCODONE) TABLET ONGOING [Concomitant]
  3. LEVOTHYROXIN (LEVOTHYROXINE SODIUM) TABLET ONGOING [Concomitant]
  4. VYVANSE [Suspect]
     Indication: PRODUCT USED FOR UNKNOWN INDICATION
     Dosage: 50 MG, 1X/DAY:QD, ORAL UNK(OPEN CAPSULE AND SPRINKLE HALF OF CONTENTS ON FOOD), 1X/DAY:QD, ORAL
     Route: 048
     Dates: start: 20110928
  5. CITALOPRAM (CITALOPRAM) TABLET ONGOING [Concomitant]

REACTIONS (3)
  - BLOOD PRESSURE INCREASED [None]
  - PALPITATIONS [None]
  - DRUG PRESCRIBING ERROR [None]
